FAERS Safety Report 9109266 (Version 1)
Quarter: 2013Q1

REPORT INFORMATION
  Report Type: Spontaneous
  Country: AU (occurrence: AU)
  Receive Date: 20130222
  Receipt Date: 20130222
  Transmission Date: 20140127
  Serious: Yes (Other)
  Sender: FDA-Public Use
  Company Number: AU-JNJFOC-20130207846

PATIENT
  Sex: 0

DRUGS (5)
  1. ITRACONAZOLE [Suspect]
     Indication: PROPHYLAXIS
     Route: 065
  2. PROTON PUMP INHIBITORS [Interacting]
     Indication: PRODUCT USED FOR UNKNOWN INDICATION
     Route: 065
  3. ANTACID [Concomitant]
     Route: 065
  4. TACROLIMUS [Concomitant]
     Route: 065
  5. CYCLOSPORINE [Concomitant]
     Route: 065

REACTIONS (3)
  - Systemic mycosis [Unknown]
  - Drug interaction [Unknown]
  - Antibiotic level below therapeutic [Unknown]
